FAERS Safety Report 10408063 (Version 1)
Quarter: 2014Q3

REPORT INFORMATION
  Report Type: Other
  Country: DE (occurrence: DE)
  Receive Date: 20140825
  Receipt Date: 20140825
  Transmission Date: 20150326
  Serious: Yes (Other)
  Sender: FDA-Public Use
  Company Number: DE-MYLAN-2014M1001674

PATIENT

DRUGS (1)
  1. RAMIPRIL 5 MG [Suspect]
     Active Substance: RAMIPRIL
     Indication: HYPERTENSION
     Dosage: 5 MG, QD
     Route: 065
     Dates: start: 2008

REACTIONS (3)
  - Oedema peripheral [None]
  - Oedema peripheral [Unknown]
  - Uveitis [Unknown]
